FAERS Safety Report 8058597-9 (Version None)
Quarter: 2012Q1

REPORT INFORMATION
  Report Type: 
  Country: None (occurrence: None)
  Receive Date: 20120120
  Receipt Date: 20120113
  Transmission Date: 20120608
  Serious: Yes (Other)
  Sender: FDA-Public Use
  Company Number: US-JNJFOC-20111101669

PATIENT
  Sex: Male
  Weight: 106.6 kg

DRUGS (3)
  1. ENBREL [Suspect]
     Dates: end: 20110124
  2. STELARA [Suspect]
     Indication: PSORIASIS
     Route: 058
     Dates: start: 20110404, end: 20110802
  3. ENBREL [Suspect]
     Indication: PSORIASIS
     Dosage: FOR 3 MONTHS
     Dates: start: 20090415

REACTIONS (1)
  - MULTIPLE MYELOMA [None]
